FAERS Safety Report 21579865 (Version 1)
Quarter: 2022Q4

REPORT INFORMATION
  Report Type: Spontaneous
  Country: FI (occurrence: FI)
  Receive Date: 20221110
  Receipt Date: 20221110
  Transmission Date: 20230112
  Serious: Yes (Hospitalization, Other)
  Sender: FDA-Public Use
  Company Number: FI-GLAXOSMITHKLINE-FI2017082965

PATIENT
  Age: 76 Year
  Sex: Male

DRUGS (12)
  1. DIPRIVAN [Suspect]
     Active Substance: PROPOFOL
     Indication: Induction of anaesthesia
     Dosage: UNK
     Route: 042
     Dates: start: 20161222, end: 20161222
  2. XYLOCAINE [Suspect]
     Active Substance: LIDOCAINE HYDROCHLORIDE
     Indication: Induction of anaesthesia
     Dosage: UNK
     Route: 042
     Dates: start: 20161222, end: 20161222
  3. FENTANYL [Suspect]
     Active Substance: FENTANYL
     Indication: Induction of anaesthesia
     Dosage: UNK
     Route: 055
     Dates: start: 20161222, end: 20161222
  4. FENTANYL [Suspect]
     Active Substance: FENTANYL
     Dosage: UNK
     Route: 030
     Dates: start: 20160622
  5. FENTANYL [Suspect]
     Active Substance: FENTANYL
     Dosage: UNK
     Route: 042
     Dates: start: 20161222, end: 20161222
  6. ETILEFRINE HYDROCHLORIDE [Suspect]
     Active Substance: ETILEFRINE HYDROCHLORIDE
     Indication: Prophylaxis
     Dosage: 4 MG, SINGLE
     Route: 042
     Dates: start: 20161222, end: 20161222
  7. HUMAN VARICELLA-ZOSTER IMMUNE GLOBULIN [Suspect]
     Active Substance: HUMAN VARICELLA-ZOSTER IMMUNE GLOBULIN
     Indication: Prophylaxis
     Dosage: 50 MCG
     Route: 030
     Dates: start: 20160622, end: 20160622
  8. FUROSEMIDE [Suspect]
     Active Substance: FUROSEMIDE
     Indication: Prophylaxis
     Dosage: 10 MG, SINGLE
     Route: 042
     Dates: start: 20161222, end: 20161222
  9. NOREPINEPHRINE [Suspect]
     Active Substance: NOREPINEPHRINE
     Indication: Prophylaxis
     Dosage: UNK
     Route: 042
     Dates: start: 20161222, end: 20161222
  10. SEVOFLURANE [Suspect]
     Active Substance: SEVOFLURANE
     Indication: Induction of anaesthesia
     Dosage: UNK
     Route: 055
     Dates: start: 20161222, end: 20161222
  11. CIPROFLOXACIN [Suspect]
     Active Substance: CIPROFLOXACIN
     Indication: Antibiotic prophylaxis
     Dosage: UNK
     Route: 065
     Dates: start: 20161222, end: 20161222
  12. PHENYLEPHRINE HYDROCHLORIDE [Suspect]
     Active Substance: PHENYLEPHRINE HYDROCHLORIDE
     Indication: Prophylaxis
     Dosage: 0.2MG ONCE/SINGLE ADMINISTRATION
     Route: 042
     Dates: start: 20161222, end: 20161222

REACTIONS (1)
  - Anaphylactic reaction [Recovered/Resolved]

NARRATIVE: CASE EVENT DATE: 20161222
